FAERS Safety Report 10236308 (Version 1)
Quarter: 2014Q2

REPORT INFORMATION
  Report Type: Spontaneous
  Country: US (occurrence: None)
  Receive Date: 20140612
  Receipt Date: 20140612
  Transmission Date: 20141212
  Serious: Yes (Other)
  Sender: FDA-Public Use
  Company Number: None

PATIENT
  Age: 28 Year
  Sex: Female
  Weight: 75.8 kg

DRUGS (9)
  1. MIRENA [Suspect]
     Indication: CONTRACEPTION
     Dosage: 1 IUD 5 YEARS VAGINAL
     Route: 067
     Dates: start: 20140304, end: 20140403
  2. ALBUTEROL INHALER [Concomitant]
  3. CITALOPRAM [Concomitant]
  4. CYCLOBENZAPRINE [Concomitant]
  5. GABAPENTIN [Concomitant]
  6. IBUPROFEN [Concomitant]
  7. OMEPRAZOLE [Concomitant]
  8. OXYCODONE [Concomitant]
  9. TIOTROPIUM [Concomitant]

REACTIONS (3)
  - Weight increased [None]
  - Oedema peripheral [None]
  - Abdominal distension [None]
